FAERS Safety Report 8102121-9 (Version None)
Quarter: 2012Q1

REPORT INFORMATION
  Report Type: 
  Country: None (occurrence: None)
  Receive Date: 20120131
  Receipt Date: 20120119
  Transmission Date: 20120608
  Serious: Yes (Hospitalization)
  Sender: FDA-Public Use
  Company Number: DK-BRISTOL-MYERS SQUIBB COMPANY-16358095

PATIENT
  Age: 64 Year
  Sex: Female
  Weight: 75 kg

DRUGS (1)
  1. SPRYCEL [Suspect]
     Indication: CHRONIC MYELOID LEUKAEMIA
     Dosage: STYRKE:100 MG.70 MG 2 GANGE DAGLIG FRA MAR2007,REDUCERET TIL 100MG DAGLIG SEP2008 FILM COAT TABS
     Route: 048
     Dates: start: 20070328

REACTIONS (6)
  - CHEST DISCOMFORT [None]
  - HYPERCALCAEMIA [None]
  - PULMONARY HYPERTENSION [None]
  - MULTIPLE MYELOMA [None]
  - BACK PAIN [None]
  - RENAL IMPAIRMENT [None]
